FAERS Safety Report 21753992 (Version 3)
Quarter: 2024Q2

REPORT INFORMATION
  Report Type: Spontaneous
  Country: TW (occurrence: TW)
  Receive Date: 20221220
  Receipt Date: 20240606
  Transmission Date: 20240716
  Serious: Yes (Death, Life-Threatening, Other)
  Sender: FDA-Public Use
  Company Number: TW-002147023-NVSC2022TW291582

PATIENT
  Sex: Female

DRUGS (4)
  1. CYCLOSPORINE [Suspect]
     Active Substance: CYCLOSPORINE
     Indication: Haemophagocytic lymphohistiocytosis
     Dosage: UNK, Q12H (30-50 MG)
     Route: 048
     Dates: start: 20221024, end: 20230105
  2. CYCLOSPORINE [Suspect]
     Active Substance: CYCLOSPORINE
  3. CYCLOSPORINE [Suspect]
     Active Substance: CYCLOSPORINE
     Indication: Graft versus host disease
     Dosage: UNK, Q12H (AMPOULE, 10-30 MG)
     Route: 042
     Dates: start: 20221024, end: 20230105
  4. CYCLOSPORINE [Suspect]
     Active Substance: CYCLOSPORINE
     Indication: Prophylaxis

REACTIONS (2)
  - Haemophagocytic lymphohistiocytosis [Fatal]
  - Lung disorder [Fatal]

NARRATIVE: CASE EVENT DATE: 20230106
